FAERS Safety Report 9644169 (Version 1)
Quarter: 2013Q4

REPORT INFORMATION
  Report Type: Spontaneous
  Country: US (occurrence: US)
  Receive Date: 20131024
  Receipt Date: 20131024
  Transmission Date: 20140711
  Serious: No
  Sender: FDA-Public Use
  Company Number: US-009507513-1310USA011374

PATIENT
  Sex: Female

DRUGS (3)
  1. GYNE LOTRIMIN 3 DAY CREAM [Suspect]
     Indication: PRURITUS
     Dosage: UNK, UNKNOWN
     Route: 061
  2. GYNE LOTRIMIN 3 DAY CREAM [Suspect]
     Indication: VULVOVAGINAL DISCOMFORT
  3. GYNE LOTRIMIN 3 DAY CREAM [Suspect]
     Indication: VULVOVAGINAL MYCOTIC INFECTION

REACTIONS (1)
  - Drug ineffective [Unknown]
